FAERS Safety Report 7248811-1 (Version None)
Quarter: 2011Q1

REPORT INFORMATION
  Report Type: 
  Country: None (occurrence: None)
  Receive Date: 20110107
  Receipt Date: 20101229
  Transmission Date: 20110831
  Serious: Yes (Life-Threatening)
  Sender: FDA-Public Use
  Company Number: AECAN201000451

PATIENT
  Age: 18 Year
  Sex: Male

DRUGS (1)
  1. IGIVNEX [Suspect]
     Indication: EPILEPSY
     Dosage: IV
     Route: 042
     Dates: start: 20101001, end: 20101001

REACTIONS (1)
  - STATUS EPILEPTICUS [None]
